FAERS Safety Report 7299603-9 (Version None)
Quarter: 2010Q4

REPORT INFORMATION
  Report Type: 
  Country: None (occurrence: None)
  Receive Date: 20101223
  Receipt Date: 20100630
  Transmission Date: 20110411
  Serious: Yes (Other)
  Sender: FDA-Public Use
  Company Number: 306506

PATIENT
  Age: 73 Year
  Sex: Female
  Weight: 86.2 kg

DRUGS (1)
  1. LEVEMIR [Suspect]
     Dosage: 42 IU, QD, SUBCUTANEOUS
     Route: 058

REACTIONS (2)
  - HYPOGLYCAEMIA [None]
  - HYPOGLYCAEMIC UNCONSCIOUSNESS [None]
